FAERS Safety Report 24625526 (Version 1)
Quarter: 2024Q4

REPORT INFORMATION
  Report Type: Spontaneous
  Country: TW (occurrence: TW)
  Receive Date: 20241115
  Receipt Date: 20241115
  Transmission Date: 20250115
  Serious: Yes (Life-Threatening, Hospitalization)
  Sender: MYLAN
  Company Number: TW-MYLANLABS-2024M1102527

PATIENT
  Age: 52 Year
  Sex: Female

DRUGS (4)
  1. OXALIPLATIN [Suspect]
     Active Substance: OXALIPLATIN
     Indication: Colorectal cancer
     Dosage: UNK
     Route: 065
  2. SODIUM BICARBONATE [Concomitant]
     Active Substance: SODIUM BICARBONATE
     Indication: Metabolic acidosis
     Dosage: UNK
     Route: 065
  3. EPINEPHRINE [Concomitant]
     Active Substance: EPINEPHRINE
     Indication: Bradycardia
     Dosage: UNK
     Route: 065
  4. EPINEPHRINE [Concomitant]
     Active Substance: EPINEPHRINE
     Indication: Hypotension

REACTIONS (8)
  - Pneumothorax [Unknown]
  - Abdominal compartment syndrome [Unknown]
  - Circulatory collapse [Unknown]
  - Bradycardia [Unknown]
  - Hypotension [Unknown]
  - Metabolic acidosis [Unknown]
  - Emphysema [Unknown]
  - Pleural effusion [Unknown]
